FAERS Safety Report 4896486-9 (Version None)
Quarter: 2006Q1

REPORT INFORMATION
  Report Type: 
  Country: None (occurrence: None)
  Receive Date: 20060131
  Receipt Date: 20051212
  Transmission Date: 20060701
  Serious: Yes (Other)
  Sender: FDA-Public Use
  Company Number: US-GLAXOSMITHKLINE-A0585539A

PATIENT
  Age: 37 Year
  Sex: Female

DRUGS (4)
  1. PAXIL [Suspect]
     Indication: DEPRESSION
     Route: 048
  2. PAXIL CR [Suspect]
     Indication: DEPRESSION
     Route: 048
  3. PAROXETINE HCL [Suspect]
     Indication: DEPRESSION
     Dosage: 20G PER DAY
     Route: 048
     Dates: start: 20040101
  4. NO CONCURRENT MEDICATION [Concomitant]

REACTIONS (6)
  - DEPENDENCE [None]
  - DRUG INTOLERANCE [None]
  - DRUG WITHDRAWAL SYNDROME [None]
  - HYPERHIDROSIS [None]
  - INFLUENZA LIKE ILLNESS [None]
  - NAUSEA [None]
